FAERS Safety Report 5605488-6 (Version None)
Quarter: 2008Q1

REPORT INFORMATION
  Report Type: 
  Country: None (occurrence: None)
  Receive Date: 20080124
  Receipt Date: 20080124
  Transmission Date: 20080703
  Serious: No
  Sender: FDA-Public Use
  Company Number: None

PATIENT
  Sex: Male
  Weight: 80.2867 kg

DRUGS (2)
  1. ARMODAFINIL [Suspect]
     Indication: INVESTIGATION
     Dosage: 150 MG DAILY
     Dates: start: 20071129, end: 20080119
  2. OLANZAPINE [Concomitant]

REACTIONS (1)
  - DYSKINESIA [None]
